FAERS Safety Report 16735440 (Version 1)
Quarter: 2019Q3

REPORT INFORMATION
  Report Type: Spontaneous
  Country: GB (occurrence: GB)
  Receive Date: 20190823
  Receipt Date: 20190823
  Transmission Date: 20191005
  Serious: Yes (Other)
  Sender: FDA-Public Use
  Company Number: GB-009507513-1905GBR007900

PATIENT
  Age: 2 Year
  Sex: Male

DRUGS (1)
  1. SINGULAIR [Suspect]
     Active Substance: MONTELUKAST SODIUM
     Indication: ASTHMA
     Dosage: UNK
     Route: 048

REACTIONS (13)
  - Personality change [Unknown]
  - Defiant behaviour [Recovering/Resolving]
  - Hallucination, visual [Unknown]
  - Depression [Unknown]
  - Nightmare [Recovered/Resolved]
  - Abnormal behaviour [Recovering/Resolving]
  - Screaming [Unknown]
  - Sleep terror [Recovered/Resolved]
  - Hyperhidrosis [Unknown]
  - Suicidal ideation [Unknown]
  - Adverse event [Unknown]
  - Aggression [Recovering/Resolving]
  - Disturbance in attention [Recovering/Resolving]
